FAERS Safety Report 18973168 (Version 1)
Quarter: 2021Q1

REPORT INFORMATION
  Report Type: Spontaneous
  Country: US (occurrence: US)
  Receive Date: 20210305
  Receipt Date: 20210305
  Transmission Date: 20210420
  Serious: Yes (Hospitalization)
  Sender: FDA-Public Use
  Company Number: US-MYLANLABS-2021M1013450

PATIENT
  Sex: Female

DRUGS (6)
  1. CLOBETASOL [Suspect]
     Active Substance: CLOBETASOL
     Indication: LICHEN SCLEROSUS
     Route: 061
     Dates: end: 2019
  2. TACROLIMUS. [Concomitant]
     Active Substance: TACROLIMUS
     Indication: LICHEN SCLEROSUS
     Route: 061
     Dates: end: 2019
  3. ACITRETIN. [Suspect]
     Active Substance: ACITRETIN
     Indication: LICHEN SCLEROSUS
     Dosage: 25 MILLIGRAM, QD
     Route: 065
     Dates: start: 2019
  4. ACITRETIN. [Suspect]
     Active Substance: ACITRETIN
     Dosage: 10 MILLIGRAM, QD, DOSE DECREASED
     Route: 065
  5. HALOBETASOL PROPIONATE. [Suspect]
     Active Substance: HALOBETASOL PROPIONATE
     Indication: LICHEN SCLEROSUS
     Dosage: UNK
     Route: 061
  6. BETAMETHASONE. [Suspect]
     Active Substance: BETAMETHASONE
     Indication: LICHEN SCLEROSUS
     Route: 061
     Dates: end: 2019

REACTIONS (4)
  - Squamous cell carcinoma of the vulva [Recovered/Resolved]
  - Skin squamous cell carcinoma recurrent [Recovered/Resolved]
  - Arthralgia [Unknown]
  - Diffuse alopecia [Unknown]

NARRATIVE: CASE EVENT DATE: 2005
